FAERS Safety Report 6062765-5 (Version None)
Quarter: 2009Q1

REPORT INFORMATION
  Report Type: 
  Country: None (occurrence: None)
  Receive Date: 20090202
  Receipt Date: 20090202
  Transmission Date: 20090719
  Serious: No
  Sender: FDA-Public Use
  Company Number: None

PATIENT
  Sex: Female
  Weight: 65.7716 kg

DRUGS (1)
  1. LISINOPRIL [Suspect]
     Indication: HYPERTENSION
     Dosage: ONE A DAY

REACTIONS (6)
  - CHEST PAIN [None]
  - COUGH [None]
  - DIPLOPIA [None]
  - DIZZINESS [None]
  - SWELLING [None]
  - VISION BLURRED [None]
